FAERS Safety Report 7564474-X (Version None)
Quarter: 2011Q2

REPORT INFORMATION
  Report Type: 
  Country: None (occurrence: None)
  Receive Date: 20110622
  Receipt Date: 20110614
  Transmission Date: 20111010
  Serious: Yes (Disabling, Other)
  Sender: FDA-Public Use
  Company Number: PHEH2007US15534

PATIENT
  Sex: Female

DRUGS (1)
  1. ZOMETA [Suspect]

REACTIONS (11)
  - OSTEOARTHRITIS [None]
  - ARTHRALGIA [None]
  - LEUKOPENIA [None]
  - DEFORMITY [None]
  - CHONDROMALACIA [None]
  - MULTIPLE MYELOMA [None]
  - AGRANULOCYTOSIS [None]
  - PAIN [None]
  - ANXIETY [None]
  - OSTEONECROSIS OF JAW [None]
  - SPINAL OSTEOARTHRITIS [None]
